FAERS Safety Report 16689941 (Version 1)
Quarter: 2019Q3

REPORT INFORMATION
  Report Type: Spontaneous
  Country: US (occurrence: US)
  Receive Date: 20190809
  Receipt Date: 20190809
  Transmission Date: 20191004
  Serious: Yes (Hospitalization)
  Sender: FDA-Public Use
  Company Number: US-009507513-1908USA002276

PATIENT
  Age: 18 Year
  Sex: Female
  Weight: 138.3 kg

DRUGS (1)
  1. NEXPLANON [Suspect]
     Active Substance: ETONOGESTREL
     Indication: CONTRACEPTION
     Dosage: 1 IMPLANT SUBDERMALLY EVERY 3 YEARS
     Route: 059
     Dates: start: 20190628

REACTIONS (3)
  - Adverse event [Unknown]
  - Implant site pain [Unknown]
  - Device breakage [Not Recovered/Not Resolved]

NARRATIVE: CASE EVENT DATE: 2019
